FAERS Safety Report 6507021-3 (Version None)
Quarter: 2009Q4

REPORT INFORMATION
  Report Type: 
  Country: None (occurrence: None)
  Receive Date: 20091127
  Receipt Date: 20090911
  Transmission Date: 20100525
  Serious: Yes (Hospitalization, Other)
  Sender: FDA-Public Use
  Company Number: US200909003548

PATIENT
  Age: 45 Year
  Sex: Female

DRUGS (1)
  1. BYETTA [Suspect]
     Indication: TYPE 2 DIABETES MELLITUS
     Dosage: 5 UG, 2/D, SUBCUTANEOUS 10 UG, 2/D, SUBCUTANEOUS
     Route: 058

REACTIONS (5)
  - DECREASED APPETITE [None]
  - DEHYDRATION [None]
  - FLUID INTAKE REDUCED [None]
  - RENAL FAILURE ACUTE [None]
  - WEIGHT DECREASED [None]
